FAERS Safety Report 7220335-7 (Version None)
Quarter: 2011Q1

REPORT INFORMATION
  Report Type: 
  Country: None (occurrence: None)
  Receive Date: 20110111
  Receipt Date: 20110104
  Transmission Date: 20110831
  Serious: Yes (Other)
  Sender: FDA-Public Use
  Company Number: US-US-EMD SERONO, INC.-7017818

PATIENT
  Sex: Female
  Weight: 85 kg

DRUGS (2)
  1. CLARITIN [Concomitant]
     Indication: HYPERSENSITIVITY
     Route: 048
  2. REBIF [Suspect]
     Indication: MULTIPLE SCLEROSIS
     Route: 058
     Dates: start: 20060522

REACTIONS (7)
  - CELLULITIS [None]
  - REFLUX OESOPHAGITIS [None]
  - INSOMNIA [None]
  - NASOPHARYNGITIS [None]
  - FURUNCLE [None]
  - FATIGUE [None]
  - BLOOD GLUCOSE ABNORMAL [None]
